FAERS Safety Report 9910272 (Version 2)
Quarter: 2014Q1

REPORT INFORMATION
  Report Type: Spontaneous
  Country: JP (occurrence: JP)
  Receive Date: 20140219
  Receipt Date: 20140219
  Transmission Date: 20141002
  Serious: Yes (Hospitalization)
  Sender: FDA-Public Use
  Company Number: JP-ASTRAZENECA-2014SE08778

PATIENT
  Age: 10 Year
  Sex: Female

DRUGS (2)
  1. PULMICORT RESPULES [Suspect]
     Indication: ASTHMA
     Route: 055
  2. MEPTIN [Concomitant]
     Indication: ASTHMA
     Route: 055

REACTIONS (2)
  - Influenza [Unknown]
  - Therapeutic response unexpected [Unknown]
